FAERS Safety Report 9455829 (Version 1)
Quarter: 2013Q3

REPORT INFORMATION
  Report Type: Spontaneous
  Country: IT (occurrence: None)
  Receive Date: 20130808
  Receipt Date: 20130808
  Transmission Date: 20140515
  Serious: Yes (Hospitalization, Other)
  Sender: FDA-Public Use
  Company Number: ADR-2013-01328

PATIENT
  Sex: 0

DRUGS (1)
  1. LIORESAL [Suspect]
     Dosage: DAY

REACTIONS (2)
  - Underdose [None]
  - Overdose [None]
